FAERS Safety Report 9414389 (Version 1)
Quarter: 2013Q3

REPORT INFORMATION
  Report Type: Spontaneous
  Country: US (occurrence: US)
  Receive Date: 20130723
  Receipt Date: 20130723
  Transmission Date: 20140515
  Serious: No
  Sender: FDA-Public Use
  Company Number: US-TEVA-346736USA

PATIENT
  Sex: Female

DRUGS (1)
  1. GABITRIL [Suspect]
     Indication: MIGRAINE PROPHYLAXIS

REACTIONS (2)
  - Off label use [Unknown]
  - Drug ineffective for unapproved indication [Unknown]
